FAERS Safety Report 5048745-7 (Version None)
Quarter: 2006Q3

REPORT INFORMATION
  Report Type: 
  Country: None (occurrence: None)
  Receive Date: 20060712
  Receipt Date: 20060703
  Transmission Date: 20061208
  Serious: Yes (Other)
  Sender: FDA-Public Use
  Company Number: PHBS2006BR10002

PATIENT
  Sex: Male
  Weight: 90 kg

DRUGS (1)
  1. FORASEQ [Suspect]
     Indication: BRONCHITIS

REACTIONS (2)
  - DYSPNOEA [None]
  - WEIGHT DECREASED [None]
